FAERS Safety Report 18525673 (Version 3)
Quarter: 2020Q4

REPORT INFORMATION
  Report Type: Spontaneous
  Country: CA (occurrence: CA)
  Receive Date: 20201120
  Receipt Date: 20201209
  Transmission Date: 20210114
  Serious: Yes (Other)
  Sender: FDA-Public Use
  Company Number: CA-ORION CORPORATION ORION PHARMA-20_00011794

PATIENT
  Age: 35 Year
  Sex: Male

DRUGS (1)
  1. METHOTREXATE (TRADE NAME UNKNOWN) [Suspect]
     Active Substance: METHOTREXATE
     Indication: IMMUNOSUPPRESSION
     Dosage: 15 MG (X 6 MONTHS)
     Route: 065
     Dates: start: 2015

REACTIONS (13)
  - Colon adenoma [Unknown]
  - Scar [Unknown]
  - Product use in unapproved indication [Unknown]
  - Diarrhoea [Unknown]
  - Intestinal stenosis [Unknown]
  - Terminal ileitis [Unknown]
  - Aphthous ulcer [Unknown]
  - Pain [Unknown]
  - Pseudopolyposis [Unknown]
  - Condition aggravated [Unknown]
  - Arthralgia [Unknown]
  - Abscess [Unknown]
  - Abdominal pain lower [Unknown]

NARRATIVE: CASE EVENT DATE: 201607
